FAERS Safety Report 10405917 (Version 3)
Quarter: 2014Q3

REPORT INFORMATION
  Report Type: Spontaneous
  Country: JP (occurrence: JP)
  Receive Date: 20140825
  Receipt Date: 20140917
  Transmission Date: 20150326
  Serious: Yes (Other)
  Sender: FDA-Public Use
  Company Number: JP-NOVOPROD-419411

PATIENT
  Age: 42 Year
  Sex: Male
  Weight: 69 kg

DRUGS (4)
  1. LANTUS [Suspect]
     Active Substance: INSULIN GLARGINE
     Indication: TYPE 2 DIABETES MELLITUS
     Dosage: 26 IU, QD
     Route: 058
     Dates: start: 20130822, end: 20140605
  2. NOVORAPID [Suspect]
     Active Substance: INSULIN ASPART
     Indication: TYPE 2 DIABETES MELLITUS
     Dosage: 34 IU, QD (11-10-13 IU)
     Route: 058
     Dates: start: 20130822, end: 20140605
  3. EPADEL                             /01682401/ [Suspect]
     Active Substance: ETHYL ICOSAPENTATE\ICOSAPENT
     Indication: DYSLIPIDAEMIA
     Dosage: 900 MG, TID
     Route: 048
     Dates: start: 20131220, end: 20140605
  4. BLOPRESS [Suspect]
     Active Substance: CANDESARTAN CILEXETIL
     Indication: HYPERTENSION
     Dosage: 4 MG, QD
     Route: 048
     Dates: start: 20130922, end: 20140605

REACTIONS (1)
  - Drug-induced liver injury [Recovered/Resolved]

NARRATIVE: CASE EVENT DATE: 20140605
